FAERS Safety Report 8972896 (Version 1)
Quarter: 2012Q4

REPORT INFORMATION
  Report Type: 
  Country: GB (occurrence: US)
  Receive Date: 20121218
  Receipt Date: 20121218
  Transmission Date: 20130627
  Serious: Yes (Hospitalization)
  Sender: FDA-Public Use
  Company Number: US-MERCK-1212USA004526

PATIENT
  Age: 60 Year
  Sex: Female
  Weight: 50.3 kg

DRUGS (10)
  1. TEMODAR [Suspect]
     Indication: GLIOBLASTOMA MULTIFORME
     Dosage: 150 mg, qow
     Route: 048
     Dates: start: 20110220, end: 20110315
  2. TEMODAR [Suspect]
     Dosage: 150 mg, qd
     Route: 048
     Dates: start: 20110215, end: 20110219
  3. TEMODAR [Suspect]
     Dosage: 200 mg daily, days 1 -5 and 15- 19 for a 28 day cycle
     Route: 048
  4. BEVACIZUMAB [Suspect]
     Indication: GLIOBLASTOMA MULTIFORME
     Dosage: 500 mg, qow
     Route: 042
     Dates: start: 20110215, end: 20110315
  5. BEVACIZUMAB [Suspect]
     Dosage: 795 mg, qd
     Route: 042
  6. BEVACIZUMAB [Suspect]
     Dosage: 795 mg, 1st day and 5th day in a 28 day cycle
     Route: 042
  7. DECADRON [Concomitant]
     Dosage: 2 mg, bid
  8. VIMPAT [Concomitant]
     Dosage: 50 mg, bid
  9. ZOFRAN [Concomitant]
     Dosage: 6 mg, prn
  10. COLACE [Concomitant]
     Dosage: UNK, prn

REACTIONS (1)
  - Deep vein thrombosis [Recovering/Resolving]
